FAERS Safety Report 12924881 (Version 1)
Quarter: 2016Q4

REPORT INFORMATION
  Report Type: Spontaneous
  Country: US (occurrence: US)
  Receive Date: 20161108
  Receipt Date: 20161108
  Transmission Date: 20170207
  Serious: Yes (Death)
  Sender: FDA-Public Use
  Company Number: US-ACTELION-A-NJ2016-144975

PATIENT
  Age: 22 Year
  Sex: Male

DRUGS (8)
  1. LORATADIN [Concomitant]
     Active Substance: LORATADINE
     Dosage: 10 MG, AS NEEDED
     Dates: start: 20151029
  2. ZONISAMIDE. [Concomitant]
     Active Substance: ZONISAMIDE
     Dosage: 100 MG, AS DIRECTED
     Dates: start: 20151029
  3. HYDROCHLORTHIAZID [Concomitant]
     Active Substance: HYDROCHLOROTHIAZIDE
     Dosage: 50 MG, AS DIRECTED
     Dates: start: 20151029
  4. VALPROIC ACID. [Concomitant]
     Active Substance: VALPROIC ACID
     Dosage: 250MG/5ML, AS DIRECTED
     Dates: start: 20151029
  5. ZAVESCA [Suspect]
     Active Substance: MIGLUSTAT
     Indication: LIPIDOSIS
     Dosage: 200 MG, TID
     Route: 048
     Dates: start: 20151029
  6. MIRALAX [Concomitant]
     Active Substance: POLYETHYLENE GLYCOL 3350
     Dosage: 17 G, QD
     Dates: start: 20151029
  7. KEPPRA [Concomitant]
     Active Substance: LEVETIRACETAM
     Dosage: 100 MG/ML, AS DIRECTED
     Dates: start: 20151029
  8. ROBINUL [Concomitant]
     Active Substance: GLYCOPYRROLATE
     Dosage: 1 MG, AS DIRECTED

REACTIONS (1)
  - Death [Fatal]

NARRATIVE: CASE EVENT DATE: 20161030
